FAERS Safety Report 10766183 (Version 1)
Quarter: 2015Q1

REPORT INFORMATION
  Report Type: Spontaneous
  Country: CH (occurrence: CH)
  Receive Date: 20150205
  Receipt Date: 20150205
  Transmission Date: 20150721
  Serious: Yes (Other)
  Sender: FDA-Public Use
  Company Number: CH-TEVA-537109ISR

PATIENT
  Age: 45 Year
  Sex: Male

DRUGS (4)
  1. CISPLATIN. [Suspect]
     Active Substance: CISPLATIN
     Indication: PHAEOCHROMOCYTOMA
     Dosage: ACCORDING TO CVD REGIMEN
     Route: 065
     Dates: start: 2014, end: 2014
  2. DACIN [Suspect]
     Active Substance: DACARBAZINE
     Indication: PHAEOCHROMOCYTOMA
     Dosage: ORDING TO CVD REGIMEN
     Route: 065
     Dates: start: 2014, end: 2014
  3. VELBE [Suspect]
     Active Substance: VINBLASTINE SULFATE
     Indication: PHAEOCHROMOCYTOMA
     Dosage: ORDING TO CVD REGIMEN
     Route: 065
     Dates: start: 2014, end: 2014
  4. XGEVA [Concomitant]
     Active Substance: DENOSUMAB
     Indication: METASTASES TO SPINE
     Dosage: CONTINUING
     Route: 065
     Dates: start: 2014

REACTIONS (3)
  - Metastases to liver [Unknown]
  - Paraplegia [Recovering/Resolving]
  - Neoplasm progression [Not Recovered/Not Resolved]

NARRATIVE: CASE EVENT DATE: 2014
